FAERS Safety Report 4386262-8 (Version None)
Quarter: 2004Q2

REPORT INFORMATION
  Report Type: 
  Country: None (occurrence: None)
  Receive Date: 20040623
  Receipt Date: 20040611
  Transmission Date: 20050107
  Serious: Yes (Other)
  Sender: FDA-Public Use
  Company Number: GB-JNJFOC-20040603811

PATIENT
  Age: 74 Year
  Sex: Male

DRUGS (1)
  1. REMINYL [Suspect]

REACTIONS (6)
  - DERMATITIS EXFOLIATIVE [None]
  - HEADACHE [None]
  - MALAISE [None]
  - OEDEMA PERIPHERAL [None]
  - RASH MORBILLIFORM [None]
  - SKIN DISCOLOURATION [None]
